FAERS Safety Report 15000727 (Version 1)
Quarter: 2018Q2

REPORT INFORMATION
  Report Type: Report from Study
  Country: JP (occurrence: JP)
  Receive Date: 20180612
  Receipt Date: 20180612
  Transmission Date: 20180711
  Serious: Yes (Other)
  Sender: FDA-Public Use
  Company Number: JP-PFIZER INC-2018234457

PATIENT

DRUGS (6)
  1. OXALIPLATIN. [Suspect]
     Active Substance: OXALIPLATIN
     Dosage: 130 MG/M2, EVERY 3 WEEKS (ON DAY 1, AFTER THE SECOND CHEMOTHERAPY CYCLE)
  2. OXALIPLATIN. [Suspect]
     Active Substance: OXALIPLATIN
     Indication: COLORECTAL CANCER METASTATIC
     Dosage: 130 MG/M2, CYCLIC (ON DAY 1, ON POSTOPERATIVE DAY 7)
  3. CAPECITABINE. [Suspect]
     Active Substance: CAPECITABINE
     Indication: COLORECTAL CANCER METASTATIC
     Dosage: 1000 MG/M2, 2X/DAY (ON DAYS 1-14, ON POSTOPERATIVE DAY 7)
  4. OXALIPLATIN. [Suspect]
     Active Substance: OXALIPLATIN
     Dosage: 100 MG/M2, CYCLIC (DOSE REDUCTION)
  5. BEVACIZUMAB. [Suspect]
     Active Substance: BEVACIZUMAB
     Indication: COLORECTAL CANCER METASTATIC
     Dosage: 7.5 MG/KG, EVERY 3 WEEKS (ON DAY 1, AFTER THE SECOND CHEMOTHERAPY)
  6. CAPECITABINE. [Suspect]
     Active Substance: CAPECITABINE
     Dosage: 1000 MG/M2, EVERY 3 WEEKS (ON DAYS 1-14, AFTER THE SECOND CHEMOTHERAPY CYCLE)

REACTIONS (1)
  - Pneumonia [Unknown]
